FAERS Safety Report 10261313 (Version 2)
Quarter: 2014Q3

REPORT INFORMATION
  Report Type: Spontaneous
  Country: FR (occurrence: FR)
  Receive Date: 20140626
  Receipt Date: 20140820
  Transmission Date: 20150326
  Serious: Yes (Other)
  Sender: FDA-Public Use
  Company Number: FR-BAYER-2014-094746

PATIENT
  Age: 25 Year
  Sex: Female

DRUGS (1)
  1. JASMINE [Suspect]
     Active Substance: DROSPIRENONE\ETHINYL ESTRADIOL
     Dosage: UNK
     Route: 048
     Dates: start: 20140609, end: 20140623

REACTIONS (6)
  - Hyperthyroidism [None]
  - Metrorrhagia [None]
  - Dry mouth [None]
  - Anxiety [None]
  - Feeling abnormal [None]
  - Suspected counterfeit product [None]

NARRATIVE: CASE EVENT DATE: 201406
